FAERS Safety Report 17069646 (Version 1)
Quarter: 2019Q4

REPORT INFORMATION
  Report Type: Spontaneous
  Country: US (occurrence: US)
  Receive Date: 20191125
  Receipt Date: 20191125
  Transmission Date: 20200122
  Serious: No
  Sender: FDA-Public Use
  Company Number: US-ALLERGAN-1906021US

PATIENT
  Weight: 54.42 kg

DRUGS (1)
  1. MEMANTINE HCL UNK [Suspect]
     Active Substance: MEMANTINE HYDROCHLORIDE
     Indication: HEADACHE
     Dosage: UNK
     Route: 048
     Dates: start: 201309

REACTIONS (1)
  - Nausea [Unknown]
